FAERS Safety Report 5515605-4 (Version None)
Quarter: 2007Q4

REPORT INFORMATION
  Report Type: 
  Country: None (occurrence: None)
  Receive Date: 20071113
  Receipt Date: 20070627
  Transmission Date: 20080405
  Serious: No
  Sender: FDA-Public Use
  Company Number: A0660317A

PATIENT
  Age: 60 Year
  Sex: Female

DRUGS (3)
  1. COREG [Suspect]
     Indication: HYPERTENSION
     Dosage: 6.25MG PER DAY
     Route: 048
     Dates: start: 20070301
  2. LIPITOR [Suspect]
     Dosage: 10MG PER DAY
     Dates: start: 20070301
  3. ASPIRIN [Concomitant]

REACTIONS (3)
  - DIARRHOEA [None]
  - DRY MOUTH [None]
  - WEIGHT DECREASED [None]
